FAERS Safety Report 6674719-6 (Version None)
Quarter: 2010Q2

REPORT INFORMATION
  Report Type: 
  Country: None (occurrence: None)
  Receive Date: 20100409
  Receipt Date: 20100331
  Transmission Date: 20101027
  Serious: Yes (Hospitalization)
  Sender: FDA-Public Use
  Company Number: FR-PFIZER INC-2010040878

PATIENT
  Age: 76 Year
  Sex: Male

DRUGS (1)
  1. CAMPTOSAR [Suspect]
     Dosage: 180 MG/M2, CYCLIC
     Dates: start: 20100119, end: 20100202

REACTIONS (4)
  - CHILLS [None]
  - HYPERTENSION [None]
  - MALAISE [None]
  - TREMOR [None]
